FAERS Safety Report 23976617 (Version 2)
Quarter: 2024Q4

REPORT INFORMATION
  Report Type: Spontaneous
  Country: IN (occurrence: IN)
  Receive Date: 20240614
  Receipt Date: 20241220
  Transmission Date: 20250114
  Serious: Yes (Other)
  Sender: RANBAXY
  Company Number: IN-SUN PHARMACEUTICAL INDUSTRIES LTD-2024R1-450990

PATIENT
  Age: 35 Year
  Sex: Male

DRUGS (2)
  1. ERLOTINIB [Suspect]
     Active Substance: ERLOTINIB
     Indication: Prophylaxis
     Dosage: UNK
     Route: 065
  2. cefoperazon/ sulbactam [Concomitant]
     Indication: Prophylaxis
     Dosage: 3 GRAM, BID
     Route: 042

REACTIONS (3)
  - Pleural effusion [Unknown]
  - Delftia acidovorans infection [Unknown]
  - Enterococcal infection [Unknown]
